FAERS Safety Report 5261343-5 (Version None)
Quarter: 2007Q1

REPORT INFORMATION
  Report Type: 
  Country: None (occurrence: None)
  Receive Date: 20070307
  Receipt Date: 20070212
  Transmission Date: 20070707
  Serious: Yes (Hospitalization)
  Sender: FDA-Public Use
  Company Number: 070202783

PATIENT
  Age: 41 Year
  Sex: Male

DRUGS (2)
  1. ADVIL [Suspect]
     Indication: DRUG USE FOR UNKNOWN INDICATION
     Dates: start: 20070209, end: 20070211
  2. MUCINEX [Suspect]
     Indication: DRUG USE FOR UNKNOWN INDICATION
     Dosage: ORAL
     Route: 048
     Dates: start: 20070209, end: 20070211

REACTIONS (2)
  - STEVENS-JOHNSON SYNDROME [None]
  - WHITE BLOOD CELL COUNT ABNORMAL [None]
